FAERS Safety Report 9462177 (Version 1)
Quarter: 2013Q3

REPORT INFORMATION
  Report Type: Spontaneous
  Country: US (occurrence: None)
  Receive Date: 20130815
  Receipt Date: 20130815
  Transmission Date: 20140515
  Serious: Yes (Hospitalization)
  Sender: FDA-Public Use
  Company Number: None

PATIENT
  Age: 72 Year
  Sex: Female
  Weight: 87.9 kg

DRUGS (2)
  1. XARELTO [Suspect]
     Indication: DEEP VEIN THROMBOSIS
     Dosage: 15MG BID PO
     Route: 048
  2. HCTZ/TRIAMTERENE [Concomitant]

REACTIONS (3)
  - Rectal haemorrhage [None]
  - Fatigue [None]
  - Melaena [None]
